FAERS Safety Report 8178850-8 (Version None)
Quarter: 2012Q1

REPORT INFORMATION
  Report Type: 
  Country: None (occurrence: None)
  Receive Date: 20120302
  Receipt Date: 20120221
  Transmission Date: 20120608
  Serious: Yes (Other)
  Sender: FDA-Public Use
  Company Number: DE-BRISTOL-MYERS SQUIBB COMPANY-16410037

PATIENT
  Age: 20 Year
  Sex: Male

DRUGS (2)
  1. CITALOPRAM HYDROBROMIDE [Concomitant]
     Dosage: 10MG:21-22AUG11 20MG:23AUG-01SEP11 30MG:02SEP TO ONG
     Route: 048
     Dates: start: 20110821
  2. ABILIFY [Suspect]
     Route: 048
     Dates: start: 20110830, end: 20110831

REACTIONS (3)
  - OFF LABEL USE [None]
  - ANXIETY [None]
  - DYSKINESIA [None]
